FAERS Safety Report 15387396 (Version 1)
Quarter: 2018Q3

REPORT INFORMATION
  Report Type: Spontaneous
  Country: ES (occurrence: ES)
  Receive Date: 20180914
  Receipt Date: 20180914
  Transmission Date: 20181010
  Serious: Yes (Other)
  Sender: FDA-Public Use
  Company Number: ES-MYLANLABS-2018M1067051

PATIENT
  Age: 54 Year
  Sex: Male

DRUGS (2)
  1. HEPARIN [Suspect]
     Active Substance: HEPARIN SODIUM
     Indication: ANTICOAGULANT THERAPY
     Dosage: UNK
     Route: 058
  2. MITOMYCIN. [Suspect]
     Active Substance: MITOMYCIN
     Indication: OPEN ANGLE GLAUCOMA
     Dosage: 0.2 MG/ML,UNK, BETWEEN THE SCLERAL FLAP
     Route: 031

REACTIONS (4)
  - Choroidal detachment [Unknown]
  - Intentional product use issue [Recovered/Resolved]
  - Vomiting [Unknown]
  - Product use in unapproved indication [Recovered/Resolved]
